FAERS Safety Report 12242807 (Version 3)
Quarter: 2016Q4

REPORT INFORMATION
  Report Type: Spontaneous
  Country: US (occurrence: US)
  Receive Date: 20160406
  Receipt Date: 20161205
  Transmission Date: 20170207
  Serious: Yes (Other)
  Sender: FDA-Public Use
  Company Number: US-ELI_LILLY_AND_COMPANY-US201604000371

PATIENT
  Sex: Female

DRUGS (28)
  1. GABAPENTIN. [Concomitant]
     Active Substance: GABAPENTIN
     Dosage: 200 MG, EACH EVENING
  2. DIAZEPAM. [Concomitant]
     Active Substance: DIAZEPAM
     Dosage: 5 MG, UNKNOWN
     Route: 065
  3. CYANOCOBALAMIN. [Concomitant]
     Active Substance: CYANOCOBALAMIN
     Dosage: 1000 UG, MONTHLY (1/M)
     Route: 030
     Dates: start: 20150505
  4. SEROQUEL [Concomitant]
     Active Substance: QUETIAPINE FUMARATE
     Dosage: 300 MG, EACH EVENING
     Route: 048
     Dates: start: 20140312
  5. DAKINS FULL [Concomitant]
     Active Substance: SODIUM HYPOCHLORITE
     Dosage: UNK, QD
     Route: 065
  6. TRAMADOL. [Concomitant]
     Active Substance: TRAMADOL
     Dosage: 50 MG, UNKNOWN
     Route: 065
  7. CYMBALTA [Suspect]
     Active Substance: DULOXETINE HYDROCHLORIDE
     Indication: PAIN
     Dosage: 30 MG, QD
     Route: 048
     Dates: start: 20130814
  8. ESTRACE [Concomitant]
     Active Substance: ESTRADIOL
     Dosage: 1 G, WEEKLY (1/W)
     Route: 067
  9. MOBIC [Concomitant]
     Active Substance: MELOXICAM
     Dosage: 15 MG, QD
     Route: 048
     Dates: start: 20140312
  10. PAROXETINE. [Concomitant]
     Active Substance: PAROXETINE
     Dosage: 30 MG, QD
     Route: 065
  11. PRILOSEC [Concomitant]
     Active Substance: OMEPRAZOLE MAGNESIUM
     Dosage: 20 MG, BID
     Route: 048
     Dates: start: 20141231
  12. CIPROFLOXACIN. [Concomitant]
     Active Substance: CIPROFLOXACIN
     Dosage: 500 MG, UNKNOWN
     Route: 065
  13. CYCLOBENZAPRINE [Concomitant]
     Active Substance: CYCLOBENZAPRINE
     Dosage: 20 MG, EACH EVENING
     Route: 048
  14. TOLTERODINE [Concomitant]
     Active Substance: TOLTERODINE
     Dosage: 2 MG, BID
     Route: 048
  15. ESTRADIOL. [Concomitant]
     Active Substance: ESTRADIOL
     Dosage: 2 MG, BID
     Route: 048
  16. DETROL [Concomitant]
     Active Substance: TOLTERODINE TARTRATE
     Dosage: 2 MG, BID
     Route: 048
     Dates: start: 20140312
  17. FLEXERIL [Concomitant]
     Active Substance: CYCLOBENZAPRINE HYDROCHLORIDE
     Dosage: 10 MG, QD
     Route: 048
     Dates: start: 20140312
  18. MECLIZINE [Concomitant]
     Active Substance: MECLIZINE HYDROCHLORIDE
     Dosage: 25 MG, TID
     Route: 048
  19. CYMBALTA [Suspect]
     Active Substance: DULOXETINE HYDROCHLORIDE
     Indication: DEPRESSION
     Dosage: 60 MG, QD
     Route: 048
     Dates: start: 20150505, end: 20150505
  20. CYMBALTA [Suspect]
     Active Substance: DULOXETINE HYDROCHLORIDE
     Dosage: 60 MG, BID
     Route: 048
     Dates: end: 20160505
  21. FLUTICASONE [Concomitant]
     Active Substance: FLUTICASONE\FLUTICASONE PROPIONATE
     Dosage: 100 UG, QD
     Route: 045
     Dates: start: 20140312
  22. HYDROCODONE BITARTRATE AND ACETAMINOPHEN [Concomitant]
     Active Substance: ACETAMINOPHEN\HYDROCODONE BITARTRATE
     Dosage: UNK, UNKNOWN
     Route: 065
  23. PRAVASTATIN. [Concomitant]
     Active Substance: PRAVASTATIN
     Dosage: 20 MG, QD
     Route: 048
  24. TYLENOL EXTRA STRENGTH [Concomitant]
     Active Substance: ACETAMINOPHEN
     Dosage: 1000 MG, BID
     Route: 048
  25. SEROQUEL [Concomitant]
     Active Substance: QUETIAPINE FUMARATE
     Dosage: 50 MG, EACH EVENING
     Route: 048
     Dates: start: 20140312
  26. SEROQUEL [Concomitant]
     Active Substance: QUETIAPINE FUMARATE
     Dosage: 150 MG, EACH EVENING
     Route: 048
     Dates: start: 20140312
  27. PRAZOSIN [Concomitant]
     Active Substance: PRAZOSIN
     Dosage: 2 MG, TID
     Route: 048
     Dates: start: 20140312
  28. GABAPENTIN. [Concomitant]
     Active Substance: GABAPENTIN
     Dosage: 100 MG, BID
     Dates: start: 20150210

REACTIONS (61)
  - Nausea [Unknown]
  - Anxiety [Unknown]
  - Insomnia [Unknown]
  - Decreased interest [Unknown]
  - Nervousness [Unknown]
  - Libido decreased [Unknown]
  - Pernicious anaemia [Unknown]
  - Abulia [Unknown]
  - Diarrhoea [Unknown]
  - Tremor [Unknown]
  - Paranoia [Unknown]
  - Skin injury [Unknown]
  - Disturbance in attention [Unknown]
  - Abdominal pain upper [Unknown]
  - Agitation [Unknown]
  - Mood swings [Unknown]
  - Nightmare [Unknown]
  - Dizziness [Unknown]
  - Homicidal ideation [Unknown]
  - Feeling of despair [Unknown]
  - Palpitations [Unknown]
  - Dermatillomania [Unknown]
  - Paraesthesia [Unknown]
  - Dysphoria [Unknown]
  - Hypomania [Unknown]
  - Tinnitus [Unknown]
  - Drug withdrawal syndrome [Unknown]
  - Suicidal ideation [Recovering/Resolving]
  - Overconfidence [Unknown]
  - Tachyphrenia [Unknown]
  - Panic reaction [Unknown]
  - Weight increased [Unknown]
  - Negativism [Unknown]
  - Emotional distress [Unknown]
  - Anhedonia [Unknown]
  - Self esteem decreased [Unknown]
  - Fear [Unknown]
  - Poor quality sleep [Unknown]
  - Feeling guilty [Unknown]
  - Irritability [Unknown]
  - Hyperhidrosis [Unknown]
  - Stress urinary incontinence [Unknown]
  - Persecutory delusion [Unknown]
  - Dyspnoea [Unknown]
  - Lethargy [Unknown]
  - Affect lability [Unknown]
  - Vertigo [Unknown]
  - Sleep disorder [Unknown]
  - Fatigue [Unknown]
  - Decreased appetite [Unknown]
  - Restlessness [Unknown]
  - Headache [Unknown]
  - Menopausal disorder [Unknown]
  - Psychiatric symptom [Unknown]
  - Hypophagia [Unknown]
  - Confusional state [Unknown]
  - Urinary incontinence [Unknown]
  - Depression [Unknown]
  - Hostility [Unknown]
  - Hypersomnia [Unknown]
  - Social avoidant behaviour [Unknown]
